FAERS Safety Report 9707900 (Version 1)
Quarter: 2013Q4

REPORT INFORMATION
  Report Type: Spontaneous
  Country: US (occurrence: US)
  Receive Date: 20131125
  Receipt Date: 20131125
  Transmission Date: 20140711
  Serious: No
  Sender: FDA-Public Use
  Company Number: US-PFIZER INC-2013334525

PATIENT
  Sex: Female

DRUGS (3)
  1. DICLOFENAC EPOLAMINE [Suspect]
  2. FENTANYL [Suspect]
  3. REMICADE [Suspect]

REACTIONS (1)
  - Drug hypersensitivity [Unknown]
